FAERS Safety Report 9430340 (Version 1)
Quarter: 2013Q3

REPORT INFORMATION
  Report Type: Report from Study
  Country: US (occurrence: US)
  Receive Date: 20130730
  Receipt Date: 20130730
  Transmission Date: 20140515
  Serious: Yes (Hospitalization)
  Sender: FDA-Public Use
  Company Number: US-GLAXOSMITHKLINE-A1035289A

PATIENT
  Age: 53 Year
  Sex: Female
  Weight: 53 kg

DRUGS (13)
  1. PAZOPANIB [Suspect]
     Indication: BREAST CANCER METASTATIC
     Dosage: 800MG PER DAY
     Route: 048
     Dates: start: 20130212
  2. LETROZOLE [Suspect]
     Indication: BREAST CANCER METASTATIC
     Dosage: 2.5MG PER DAY
     Dates: start: 20130212
  3. CLOMIPRAMINE [Concomitant]
     Dosage: 100MG AT NIGHT
  4. SYNTHROID [Concomitant]
     Dosage: 50MCG PER DAY
  5. TYLENOL [Concomitant]
     Dosage: 1000MG PER DAY
  6. ZYRTEC [Concomitant]
     Dosage: 10MG PER DAY
  7. LOPERAMIDE [Concomitant]
  8. LORAZEPAM [Concomitant]
  9. MIRALAX [Concomitant]
  10. KDUR [Concomitant]
  11. EFFEXOR [Concomitant]
     Dosage: 225MG PER DAY
  12. MIRALAX [Concomitant]
  13. CALCIUM WITH VITAMIN D [Concomitant]

REACTIONS (2)
  - Cardiac failure [Unknown]
  - Pleural effusion [Unknown]
